FAERS Safety Report 5079379-6 (Version None)
Quarter: 2006Q3

REPORT INFORMATION
  Report Type: 
  Country: None (occurrence: None)
  Receive Date: 20060814
  Receipt Date: 20060807
  Transmission Date: 20061208
  Serious: Yes (Life-Threatening, Hospitalization)
  Sender: FDA-Public Use
  Company Number: DE-JNJFOC-20051205016

PATIENT
  Age: 67 Year
  Sex: Male

DRUGS (4)
  1. REMICADE [Suspect]
     Indication: RHEUMATOID ARTHRITIS
     Route: 042
  2. METHOTREXATE [Concomitant]
     Route: 065
     Dates: start: 20030301, end: 20050801
  3. LEFLUNOMIDE [Concomitant]
     Route: 065
  4. ENBREL [Concomitant]
     Route: 065

REACTIONS (2)
  - DIVERTICULAR PERFORATION [None]
  - WOUND DEHISCENCE [None]
